FAERS Safety Report 7898794-6 (Version None)
Quarter: 2011Q4

REPORT INFORMATION
  Report Type: 
  Country: None (occurrence: None)
  Receive Date: 20111107
  Receipt Date: 20111020
  Transmission Date: 20120403
  Serious: No
  Sender: FDA-Public Use
  Company Number: US-ABBOTT-11P-163-0867735-00

PATIENT
  Sex: Male
  Weight: 80.358 kg

DRUGS (9)
  1. LOVAZA [Concomitant]
     Indication: BLOOD CHOLESTEROL INCREASED
  2. CARDURA [Concomitant]
     Indication: HYPERTENSION
  3. DIOVAN [Concomitant]
     Indication: HYPERTENSION
  4. TECTURNA [Concomitant]
     Indication: HYPERTENSION
  5. TRICOR [Suspect]
     Indication: BLOOD TRIGLYCERIDES INCREASED
  6. NORVASC [Concomitant]
     Indication: HYPERTENSION
  7. BYSTOLIC [Concomitant]
     Indication: HYPERTENSION
  8. LOVAZA [Concomitant]
     Indication: BLOOD TRIGLYCERIDES INCREASED
  9. TRICOR [Suspect]
     Indication: BLOOD CHOLESTEROL INCREASED
     Dates: start: 20110901

REACTIONS (3)
  - MYALGIA [None]
  - ABDOMINAL PAIN UPPER [None]
  - HEADACHE [None]
